FAERS Safety Report 9052284 (Version 3)
Quarter: 2013Q2

REPORT INFORMATION
  Report Type: Spontaneous
  Country: US (occurrence: US)
  Receive Date: 20130206
  Receipt Date: 20130523
  Transmission Date: 20140414
  Serious: No
  Sender: FDA-Public Use
  Company Number: US-009507513-1302USA001928

PATIENT
  Age: 19 Year
  Sex: Female
  Weight: 61.22 kg

DRUGS (2)
  1. NUVARING [Suspect]
     Dosage: 1 RING FOR 3 WEEKS FOLLOWED BY A WEEK FREE BREAK
     Route: 067
     Dates: start: 2010
  2. NUVARING [Suspect]
     Dosage: UNK

REACTIONS (2)
  - Inappropriate schedule of drug administration [Unknown]
  - Device expulsion [Unknown]
